FAERS Safety Report 5795236-1 (Version None)
Quarter: 2008Q2

REPORT INFORMATION
  Report Type: 
  Country: None (occurrence: None)
  Receive Date: 20080625
  Receipt Date: 20080618
  Transmission Date: 20081010
  Serious: Yes (Hospitalization)
  Sender: FDA-Public Use
  Company Number: 2008JP002174

PATIENT
  Age: 56 Year
  Sex: Male
  Weight: 58.5 kg

DRUGS (9)
  1. PROGRAF [Suspect]
     Indication: MYASTHENIA GRAVIS
     Dosage: 3 MG, UNKNOWN/D, ORAL
     Route: 048
  2. PREDONINE (PREDNISOLONE) [Concomitant]
  3. MYTELASE [Concomitant]
  4. MESTINON [Concomitant]
  5. GASMOTIN (MOSAPRIDE CITRATE) [Concomitant]
  6. LANSOPRAZOLE [Concomitant]
  7. CALCIUM CITRATE (CALCIUM CITRATE) [Concomitant]
  8. SCOPOLIA EXTRACT (SCOPOLIA CARNIOLICA EXTRACT) [Concomitant]
  9. FOSAMAC (ALENDRONATE SODIUM) [Concomitant]

REACTIONS (1)
  - APLASIA PURE RED CELL [None]
